FAERS Safety Report 25375800 (Version 2)
Quarter: 2025Q2

REPORT INFORMATION
  Report Type: Spontaneous
  Country: US (occurrence: US)
  Receive Date: 20250529
  Receipt Date: 20250619
  Transmission Date: 20250716
  Serious: No
  Sender: SANOFI AVENTIS
  Company Number: US-SA-2025SA152579

PATIENT
  Age: 64 Year
  Sex: Male

DRUGS (7)
  1. DUPIXENT [Suspect]
     Active Substance: DUPILUMAB
     Indication: Dermatitis atopic
     Route: 058
     Dates: start: 20240813, end: 20240813
  2. DUPIXENT [Suspect]
     Active Substance: DUPILUMAB
     Dosage: 300 MG, QOW
     Route: 058
     Dates: start: 2024
  3. DUPIXENT [Suspect]
     Active Substance: DUPILUMAB
     Route: 058
     Dates: start: 202504, end: 202504
  4. DUPIXENT [Suspect]
     Active Substance: DUPILUMAB
     Dosage: 300 MG, QOW
     Route: 058
     Dates: start: 2025
  5. TRIAMCINOLONE ACETONIDE [Concomitant]
     Active Substance: TRIAMCINOLONE ACETONIDE
     Dosage: QOD
  6. HYDROXYZINE [Concomitant]
     Active Substance: HYDROXYZINE HYDROCHLORIDE
     Dosage: QD
  7. AQUAPHOR [MINERAL OIL LIGHT;PARAFFIN NOS;PETROLATUM;WOOL ALCOHOLS] [Concomitant]
     Dosage: QD

REACTIONS (15)
  - Illness [Recovering/Resolving]
  - Weight decreased [Recovering/Resolving]
  - Decreased appetite [Recovering/Resolving]
  - Blood potassium abnormal [Recovering/Resolving]
  - Blood magnesium abnormal [Recovering/Resolving]
  - Pain [Unknown]
  - Loss of personal independence in daily activities [Unknown]
  - Nerve compression [Unknown]
  - Skin swelling [Unknown]
  - Hypoaesthesia [Unknown]
  - Pain of skin [Unknown]
  - Erythema [Unknown]
  - Pruritus [Not Recovered/Not Resolved]
  - Rash [Not Recovered/Not Resolved]
  - Rotator cuff repair [Unknown]

NARRATIVE: CASE EVENT DATE: 20250201
